FAERS Safety Report 9510260 (Version 1)
Quarter: 2013Q3

REPORT INFORMATION
  Report Type: Spontaneous
  Country: US (occurrence: US)
  Receive Date: 20130909
  Receipt Date: 20130909
  Transmission Date: 20140515
  Serious: No
  Sender: FDA-Public Use
  Company Number: US-BRISTOL-MYERS SQUIBB COMPANY-17483561

PATIENT
  Age: 39 Year
  Sex: Female
  Weight: 99.77 kg

DRUGS (6)
  1. ABILIFY [Suspect]
     Indication: DEPRESSION
     Dates: start: 20130228
  2. CLARITIN [Concomitant]
  3. ALLERGY SHOTS [Concomitant]
  4. PROTONIX [Concomitant]
  5. SINGULAIR [Concomitant]
  6. DULERA [Concomitant]

REACTIONS (4)
  - Arthralgia [Unknown]
  - Back pain [Unknown]
  - Eczema [Unknown]
  - Food allergy [Unknown]
